FAERS Safety Report 7655288-0 (Version None)
Quarter: 2011Q3

REPORT INFORMATION
  Report Type: 
  Country: None (occurrence: None)
  Receive Date: 20110804
  Receipt Date: 20110722
  Transmission Date: 20111222
  Serious: No
  Sender: FDA-Public Use
  Company Number: US-B.I. PHARMACEUTICALS,INC./RIDGEFIELD-2011-BP-09279BP

PATIENT
  Sex: Male
  Weight: 136.4 kg

DRUGS (7)
  1. CPAP MACHINE [Concomitant]
     Indication: SLEEP APNOEA SYNDROME
     Dates: start: 20000101
  2. NUVIGIL [Concomitant]
     Indication: SLEEP APNOEA SYNDROME
     Dosage: 250 MG
     Route: 048
     Dates: start: 20080101
  3. COUMADIN [Concomitant]
     Indication: ATRIAL FIBRILLATION
     Route: 048
     Dates: end: 20110201
  4. CELEBREX [Concomitant]
     Indication: ATRIAL FIBRILLATION
     Route: 048
     Dates: start: 20000101, end: 20110301
  5. PRADAXA [Suspect]
     Indication: ATRIAL FIBRILLATION
     Dosage: 300 MG
     Route: 048
     Dates: start: 20110201, end: 20110619
  6. TESTOSTERONE [Concomitant]
     Indication: BLOOD TESTOSTERONE DECREASED
  7. PERCOCET [Concomitant]
     Indication: NERVE INJURY
     Dosage: 20 MG
     Route: 048
     Dates: start: 20080101

REACTIONS (5)
  - INTERNATIONAL NORMALISED RATIO DECREASED [None]
  - HEART RATE IRREGULAR [None]
  - SKIN EXFOLIATION [None]
  - PAIN IN EXTREMITY [None]
  - PYREXIA [None]
